FAERS Safety Report 10478315 (Version 1)
Quarter: 2014Q3

REPORT INFORMATION
  Report Type: Spontaneous
  Country: TH (occurrence: TH)
  Receive Date: 20140926
  Receipt Date: 20140926
  Transmission Date: 20150326
  Serious: Yes (Hospitalization, Other)
  Sender: FDA-Public Use
  Company Number: TH-WATSON-2014-20574

PATIENT
  Age: 46 Year
  Sex: Female

DRUGS (3)
  1. ERGOTAMINE [Suspect]
     Active Substance: CAFFEINE\ERGOTAMINE\ERGOTAMINE TARTRATE
     Indication: MIGRAINE
     Dosage: UNK
     Route: 065
  2. SAQUINAVIR [Interacting]
     Active Substance: SAQUINAVIR
     Indication: HIV INFECTION
     Dosage: 1000 MG, BID
     Route: 065
  3. RITONAVIR [Interacting]
     Active Substance: RITONAVIR
     Indication: HIV INFECTION
     Dosage: 100 MG, BID
     Route: 065

REACTIONS (2)
  - Ergot poisoning [Recovered/Resolved]
  - Drug interaction [Recovered/Resolved]
